FAERS Safety Report 11209642 (Version 1)
Quarter: 2015Q2

REPORT INFORMATION
  Report Type: Spontaneous
  Country: US (occurrence: US)
  Receive Date: 20150622
  Receipt Date: 20150622
  Transmission Date: 20150821
  Serious: Yes (Other)
  Sender: FDA-Public Use
  Company Number: US-B.I. PHARMACEUTICALS,INC./RIDGEFIELD-2015-BI-32897BP

PATIENT
  Sex: Male
  Weight: 77.11 kg

DRUGS (1)
  1. FLOMAX [Suspect]
     Active Substance: TAMSULOSIN HYDROCHLORIDE
     Indication: RECTAL CANCER
     Dosage: 0.4 MG
     Route: 048
     Dates: start: 2007

REACTIONS (3)
  - Myocardial infarction [Unknown]
  - Skin disorder [Unknown]
  - Off label use [Unknown]

NARRATIVE: CASE EVENT DATE: 2007
